FAERS Safety Report 5446063-6 (Version None)
Quarter: 2007Q3

REPORT INFORMATION
  Report Type: 
  Country: None (occurrence: None)
  Receive Date: 20070907
  Receipt Date: 20070906
  Transmission Date: 20080115
  Serious: Yes (Hospitalization)
  Sender: FDA-Public Use
  Company Number: US-BRISTOL-MYERS SQUIBB COMPANY-13899489

PATIENT
  Age: 80 Year
  Sex: Female

DRUGS (1)
  1. DEFINITY [Suspect]

REACTIONS (1)
  - ACUTE PULMONARY OEDEMA [None]
